FAERS Safety Report 7990995-1 (Version None)
Quarter: 2011Q4

REPORT INFORMATION
  Report Type: 
  Country: None (occurrence: None)
  Receive Date: 20111219
  Receipt Date: 20111209
  Transmission Date: 20120403
  Serious: Yes (Hospitalization)
  Sender: FDA-Public Use
  Company Number: JP-BRISTOL-MYERS SQUIBB COMPANY-15821986

PATIENT
  Age: 86 Year
  Sex: Female

DRUGS (18)
  1. RABEPRAZOLE SODIUM [Concomitant]
  2. DIAINAMIX [Concomitant]
  3. VANCOMYCIN HYCHLORIDE [Suspect]
     Indication: PNEUMONIA ASPIRATION
     Dates: start: 20110220
  4. ISONIAZID [Concomitant]
  5. ALENDRONATE SODIUM [Concomitant]
  6. FLUCONAZOLE [Suspect]
     Indication: PNEUMONIA ASPIRATION
     Dates: start: 20110215
  7. CYTOTEC [Concomitant]
  8. METHOTREXATE [Suspect]
     Dates: start: 20070225
  9. ASCORBIC ACID [Concomitant]
  10. ORENCIA [Suspect]
     Dosage: 18NOV10 02DEC10 12JAN2011:500MG
     Route: 041
     Dates: start: 20101104
  11. FERRUM [Concomitant]
  12. LAC-B [Concomitant]
  13. RIZE [Concomitant]
  14. DORIPENEM MONOHYDRATE [Suspect]
     Indication: PNEUMONIA ASPIRATION
     Dates: start: 20110215
  15. BUCILLAMINE [Concomitant]
  16. ACETAMINOPHEN [Concomitant]
     Indication: RHEUMATOID ARTHRITIS
  17. FORSENID [Concomitant]
  18. FOLIC ACID [Concomitant]

REACTIONS (2)
  - PNEUMONIA ASPIRATION [None]
  - HEPATIC FUNCTION ABNORMAL [None]
